FAERS Safety Report 5308110-1 (Version None)
Quarter: 2007Q2

REPORT INFORMATION
  Report Type: 
  Country: None (occurrence: None)
  Receive Date: 20070426
  Receipt Date: 20070419
  Transmission Date: 20071010
  Serious: Yes (Hospitalization)
  Sender: FDA-Public Use
  Company Number: PHEH2007US03370

PATIENT
  Age: 26 Year
  Sex: Male
  Weight: 63.492 kg

DRUGS (7)
  1. REGLAN [Suspect]
     Indication: HEADACHE
     Dosage: 10 MG, BID
     Route: 048
     Dates: start: 20070101
  2. ZELNORM [Suspect]
     Indication: IRRITABLE BOWEL SYNDROME
     Dosage: 6 MG, BID
     Route: 048
     Dates: start: 20060101
  3. GLUCOSAMINE W/CHONDROITIN [Concomitant]
     Route: 048
  4. LORTAB [Concomitant]
     Indication: PAIN
     Dosage: UNK, PRN
     Route: 048
  5. PROMETHAZINE [Concomitant]
     Indication: NAUSEA
     Dosage: 25 MG, PRN
     Route: 048
  6. IBUPROFEN [Concomitant]
     Route: 048
  7. NEURONTIN [Concomitant]
     Route: 048

REACTIONS (11)
  - ABDOMINAL PAIN [None]
  - COLECTOMY [None]
  - COLITIS ISCHAEMIC [None]
  - COMPUTERISED TOMOGRAM ABNORMAL [None]
  - DIARRHOEA HAEMORRHAGIC [None]
  - GASTROINTESTINAL OEDEMA [None]
  - HAEMORRHOIDS [None]
  - HEADACHE [None]
  - LIPASE ABNORMAL [None]
  - RECTAL ULCER [None]
  - VOMITING [None]
